FAERS Safety Report 4424549-0 (Version None)
Quarter: 2004Q2

REPORT INFORMATION
  Report Type: 
  Country: None (occurrence: None)
  Receive Date: 20040619
  Receipt Date: 20041204
  Transmission Date: 20050107
  Serious: Yes (Hospitalization)
  Sender: FDA-Public Use
  Company Number: 187965

PATIENT
  Age: 51 Year
  Sex: Male
  Weight: 104.3273 kg

DRUGS (7)
  1. AVONEX [Suspect]
     Indication: MULTIPLE SCLEROSIS
     Dosage: 30 MCG QW IM
     Dates: start: 19970101, end: 19980617
  2. BACLOFEN [Concomitant]
  3. SERTRALINE HCL [Concomitant]
  4. NITROFURANTOIN [Concomitant]
  5. SPIRONOLACTONE [Concomitant]
  6. PYRIDOXINE [Concomitant]
  7. STOOL SOFTENER [Concomitant]

REACTIONS (5)
  - FLUID RETENTION [None]
  - INFLUENZA LIKE ILLNESS [None]
  - MULTIPLE SCLEROSIS [None]
  - PYREXIA [None]
  - URINARY TRACT INFECTION [None]
